FAERS Safety Report 4676880-1 (Version None)
Quarter: 2005Q2

REPORT INFORMATION
  Report Type: 
  Country: None (occurrence: None)
  Receive Date: 20050527
  Receipt Date: 20050513
  Transmission Date: 20051028
  Serious: Yes (Hospitalization)
  Sender: FDA-Public Use
  Company Number: 2005075586

PATIENT
  Sex: Female
  Weight: 63.5036 kg

DRUGS (7)
  1. CELEBREX [Suspect]
     Indication: ARTHRITIS
     Dosage: 100 MG (100 MG, 2 D), ORAL
     Route: 048
     Dates: end: 20050501
  2. DONEPEZIL HCL [Concomitant]
  3. ATORVASTATIN CALCIUM [Concomitant]
  4. ALL OTHER THERAPEUTIC PRODUCTS (ALL OTHER THERAPEUTIC PRODUCTS) [Concomitant]
  5. GLYCEYL TRINITRATE (GLYCERYL TRINITRATE) [Concomitant]
  6. BETA BLOCKING AGENTS (BETA BLOCKIN AGENTS) [Concomitant]
  7. GLYCERYL TRINITRATE (GLYCERYL TRINITRARTE) [Concomitant]

REACTIONS (5)
  - CONSTIPATION [None]
  - DEHYDRATION [None]
  - INADEQUATE ANALGESIA [None]
  - NAUSEA [None]
  - VOMITING [None]
